FAERS Safety Report 12632352 (Version 2)
Quarter: 2016Q3

REPORT INFORMATION
  Report Type: Spontaneous
  Country: US (occurrence: US)
  Receive Date: 20160808
  Receipt Date: 20160808
  Transmission Date: 20161109
  Serious: No
  Sender: FDA-Public Use
  Company Number: US-BEH-2016062610

PATIENT
  Sex: Female
  Weight: 59 kg

DRUGS (20)
  1. ACETAMINOPHEN. [Concomitant]
     Active Substance: ACETAMINOPHEN
  2. EPIPEN [Concomitant]
     Active Substance: EPINEPHRINE
  3. ZOLPIDEM [Concomitant]
     Active Substance: ZOLPIDEM\ZOLPIDEM TARTRATE
  4. VENTOLIN [Concomitant]
     Active Substance: ALBUTEROL SULFATE
  5. AVELOX [Concomitant]
     Active Substance: MOXIFLOXACIN HYDROCHLORIDE
  6. NASACORT [Concomitant]
     Active Substance: TRIAMCINOLONE ACETONIDE
  7. PROVENTIL [Concomitant]
     Active Substance: ALBUTEROL
  8. DELSYM [Concomitant]
     Active Substance: DEXTROMETHORPHAN
  9. HIZENTRA [Suspect]
     Active Substance: HUMAN IMMUNOGLOBULIN G
     Indication: HYPOGAMMAGLOBULINAEMIA
     Route: 058
  10. CLARITHROMYCIN. [Concomitant]
     Active Substance: CLARITHROMYCIN
  11. RANITIDINE. [Concomitant]
     Active Substance: RANITIDINE
  12. VENTOLIN [Concomitant]
     Active Substance: ALBUTEROL SULFATE
  13. QNASL [Concomitant]
     Active Substance: BECLOMETHASONE DIPROPIONATE
  14. ATIVAN [Concomitant]
     Active Substance: LORAZEPAM
  15. SYMBICORT [Concomitant]
     Active Substance: BUDESONIDE\FORMOTEROL FUMARATE DIHYDRATE
  16. PREDNISONE. [Concomitant]
     Active Substance: PREDNISONE
  17. PREMARIN [Concomitant]
     Active Substance: ESTROGENS, CONJUGATED
  18. GUAIFENESIN. [Concomitant]
     Active Substance: GUAIFENESIN
  19. PROAIR HFA [Concomitant]
     Active Substance: ALBUTEROL SULFATE
  20. DIPHENHYDRAMINE. [Concomitant]
     Active Substance: DIPHENHYDRAMINE

REACTIONS (2)
  - Bronchitis [Unknown]
  - Sinusitis [Unknown]
